FAERS Safety Report 4326284-6 (Version None)
Quarter: 2004Q1

REPORT INFORMATION
  Report Type: 
  Country: None (occurrence: None)
  Receive Date: 20040325
  Receipt Date: 20040107
  Transmission Date: 20041129
  Serious: No
  Sender: FDA-Public Use
  Company Number: US063548

PATIENT
  Age: 72 Year
  Sex: Female
  Weight: 47.2 kg

DRUGS (10)
  1. NEULASTA [Suspect]
     Indication: CHEMOTHERAPY
     Dosage: 6 MG
     Dates: start: 20031208
  2. ARANESP [Concomitant]
  3. DOCETAXEL [Concomitant]
  4. EPIRUBICIN [Concomitant]
  5. CIPROFLOXACIN HYDROCHLORIDE [Concomitant]
  6. FLUCONAZOLE [Concomitant]
  7. ACETAMINOPHEN [Concomitant]
  8. ASPIRIN [Concomitant]
  9. PROCHLORPERAZINE EDISYLATE [Concomitant]
  10. ROFECOXIB [Concomitant]

REACTIONS (5)
  - BODY TEMPERATURE INCREASED [None]
  - DISCOMFORT [None]
  - DRUG INEFFECTIVE [None]
  - DYSGEUSIA [None]
  - HAEMOGLOBIN DECREASED [None]
